FAERS Safety Report 12429529 (Version 1)
Quarter: 2016Q2

REPORT INFORMATION
  Report Type: Spontaneous
  Country: US (occurrence: US)
  Receive Date: 20160602
  Receipt Date: 20160602
  Transmission Date: 20160815
  Serious: Yes (Other)
  Sender: FDA-Public Use
  Company Number: US-MEDA-2016050102

PATIENT
  Sex: Female

DRUGS (1)
  1. FELBATOL [Suspect]
     Active Substance: FELBAMATE
     Indication: SEIZURE
     Route: 048

REACTIONS (8)
  - Insomnia [Unknown]
  - Decreased activity [Unknown]
  - Dyspnoea [Unknown]
  - Drug withdrawal convulsions [Recovered/Resolved]
  - Drug ineffective [Not Recovered/Not Resolved]
  - Osteoporosis [Not Recovered/Not Resolved]
  - Fatigue [Unknown]
  - Liver injury [Not Recovered/Not Resolved]
